FAERS Safety Report 4664538-4 (Version None)
Quarter: 2005Q2

REPORT INFORMATION
  Report Type: 
  Country: None (occurrence: None)
  Receive Date: 20050518
  Receipt Date: 20050505
  Transmission Date: 20051028
  Serious: Yes (Hospitalization)
  Sender: FDA-Public Use
  Company Number: US-KINGPHARMUSA00001-K200500585

PATIENT
  Age: 73 Year
  Sex: Female
  Weight: 52 kg

DRUGS (4)
  1. LEVOXYL [Suspect]
     Indication: HYPOTHYROIDISM
     Dosage: 100 MCG, QD
     Route: 048
     Dates: start: 20040310, end: 20050101
  2. PROTONIX [Concomitant]
  3. NORVASC [Concomitant]
  4. LIPITOR                                 /NET/ [Concomitant]

REACTIONS (20)
  - ABDOMINAL PAIN UPPER [None]
  - ALOPECIA [None]
  - ANAEMIA [None]
  - AORTIC THROMBOSIS [None]
  - ASTHENIA [None]
  - CARDIAC ARREST [None]
  - CAROTID ARTERY STENOSIS [None]
  - CEREBROVASCULAR ACCIDENT [None]
  - DIZZINESS [None]
  - DRY SKIN [None]
  - FAECES DISCOLOURED [None]
  - FATIGUE [None]
  - GASTRIC ULCER HAEMORRHAGE [None]
  - HEADACHE [None]
  - HYPERTENSION [None]
  - IRRITABILITY [None]
  - PALPITATIONS [None]
  - PRURITUS [None]
  - RASH [None]
  - TREMOR [None]
